FAERS Safety Report 13301952 (Version 1)
Quarter: 2017Q1

REPORT INFORMATION
  Report Type: Report from Study
  Country: CO (occurrence: CO)
  Receive Date: 20170307
  Receipt Date: 20170307
  Transmission Date: 20170428
  Serious: Yes (Other)
  Sender: FDA-Public Use
  Company Number: CO-INCYTE CORPORATION-2017IN001464

PATIENT
  Sex: Male
  Weight: 72 kg

DRUGS (1)
  1. JAKAVI [Suspect]
     Active Substance: RUXOLITINIB
     Indication: MYELOFIBROSIS
     Dosage: 5 MG, QID (4 TIMES A DAY)
     Route: 048
     Dates: start: 20120601

REACTIONS (2)
  - Diabetic neuropathy [Unknown]
  - Inappropriate schedule of drug administration [Unknown]
